FAERS Safety Report 9217762 (Version 2)
Quarter: 2013Q2

REPORT INFORMATION
  Report Type: Report from Study
  Country: DE (occurrence: DE)
  Receive Date: 20130408
  Receipt Date: 20130513
  Transmission Date: 20140414
  Serious: Yes (Death)
  Sender: FDA-Public Use
  Company Number: DE-ROCHE-1210435

PATIENT
  Age: 26 Year
  Sex: Female

DRUGS (2)
  1. ALTEPLASE [Suspect]
     Indication: BASILAR ARTERY OCCLUSION
     Route: 042
  2. HEPARIN [Concomitant]

REACTIONS (1)
  - Death [Fatal]
